FAERS Safety Report 17560253 (Version 3)
Quarter: 2022Q2

REPORT INFORMATION
  Report Type: Other
  Country: US (occurrence: None)
  Receive Date: 20200319
  Receipt Date: 20220413
  Transmission Date: 20220721
  Serious: Yes (Other)
  Sender: FDA-Public Use
  Company Number: US-ROCHE-2566630

PATIENT
  Age: 50 Year
  Sex: Male
  Weight: 127.12 kg

DRUGS (12)
  1. OCREVUS [Suspect]
     Active Substance: OCRELIZUMAB
     Indication: Relapsing-remitting multiple sclerosis
     Route: 042
     Dates: start: 20190830
  2. DIAZEPAM [Suspect]
     Active Substance: DIAZEPAM
     Indication: Meniere^s disease
     Route: 048
  3. ATORVASTATIN [Concomitant]
     Active Substance: ATORVASTATIN
     Indication: Blood cholesterol increased
     Route: 048
     Dates: start: 2018
  4. CLARITIN-D 24 HOUR [Concomitant]
     Active Substance: LORATADINE\PSEUDOEPHEDRINE SULFATE
     Indication: Hypersensitivity
     Route: 048
  5. HYDROCODONE [Concomitant]
     Active Substance: HYDROCODONE
     Indication: Back pain
     Route: 048
     Dates: start: 2015
  6. NASACORT [Concomitant]
     Active Substance: TRIAMCINOLONE ACETONIDE
     Indication: Hypersensitivity
     Dosage: ONE SPRAY PER IN EACH NARE AS REQUIRED
     Route: 045
     Dates: start: 2018
  7. TAMSULOSIN [Concomitant]
     Active Substance: TAMSULOSIN
     Route: 048
     Dates: start: 202001
  8. VENLAFAXINE [Concomitant]
     Active Substance: VENLAFAXINE HYDROCHLORIDE
     Indication: Depression
     Route: 048
     Dates: start: 2018
  9. VITAMIN D3 [Concomitant]
     Active Substance: CHOLECALCIFEROL
     Indication: Vitamin D deficiency
     Route: 048
     Dates: start: 2018
  10. TOLTERODINE TARTRATE [Concomitant]
     Active Substance: TOLTERODINE TARTRATE
     Route: 048
     Dates: start: 202001
  11. PANTOPRAZOLE [Concomitant]
     Active Substance: PANTOPRAZOLE
     Indication: Gastrooesophageal reflux disease
     Route: 048
     Dates: start: 202001
  12. MONTELUKAST SODIUM [Concomitant]
     Active Substance: MONTELUKAST SODIUM
     Indication: Hypersensitivity
     Route: 048
     Dates: start: 2018

REACTIONS (10)
  - Hypothyroidism [Not Recovered/Not Resolved]
  - Type 2 diabetes mellitus [Not Recovered/Not Resolved]
  - Constipation [Not Recovered/Not Resolved]
  - Loss of consciousness [Recovered/Resolved]
  - Off label use [Unknown]
  - Paraesthesia [Not Recovered/Not Resolved]
  - Anxiety [Not Recovered/Not Resolved]
  - Natural killer cell count decreased [Recovering/Resolving]
  - Tension headache [Not Recovered/Not Resolved]
  - Feeling hot [Not Recovered/Not Resolved]

NARRATIVE: CASE EVENT DATE: 20190901
